FAERS Safety Report 11082402 (Version 1)
Quarter: 2015Q2

REPORT INFORMATION
  Report Type: Spontaneous
  Country: US (occurrence: US)
  Receive Date: 20150501
  Receipt Date: 20150501
  Transmission Date: 20150821
  Serious: No
  Sender: FDA-Public Use
  Company Number: US-PFIZER INC-2015141051

PATIENT
  Age: 55 Year
  Sex: Female
  Weight: 58.5 kg

DRUGS (3)
  1. TENORMIN [Concomitant]
     Active Substance: ATENOLOL
     Indication: HYPERTENSION
     Dosage: 50 MG, DAILY
  2. NEURONTIN [Suspect]
     Active Substance: GABAPENTIN
     Dosage: 100 MG, UNK
  3. NEURONTIN [Suspect]
     Active Substance: GABAPENTIN
     Indication: PAIN IN EXTREMITY
     Dosage: 300 MG, UNK

REACTIONS (3)
  - Feeling abnormal [Not Recovered/Not Resolved]
  - Blood cholesterol decreased [Unknown]
  - Blood glucose increased [Unknown]
